FAERS Safety Report 7979853-6 (Version None)
Quarter: 2011Q4

REPORT INFORMATION
  Report Type: 
  Country: None (occurrence: None)
  Receive Date: 20111214
  Receipt Date: 20111208
  Transmission Date: 20120403
  Serious: Yes (Death, Other)
  Sender: FDA-Public Use
  Company Number: GB-ROCHE-GNE322813

PATIENT
  Sex: Female

DRUGS (1)
  1. LUCENTIS [Suspect]
     Indication: AGE-RELATED MACULAR DEGENERATION
     Route: 050
     Dates: start: 20081201, end: 20110728

REACTIONS (6)
  - DEATH [None]
  - EPISTAXIS [None]
  - ENDOPHTHALMITIS [None]
  - IRIDOCYCLITIS [None]
  - BASAL CELL CARCINOMA [None]
  - POLYCYTHAEMIA VERA [None]
